FAERS Safety Report 8168131-0 (Version None)
Quarter: 2012Q1

REPORT INFORMATION
  Report Type: 
  Country: None (occurrence: None)
  Receive Date: 20120227
  Receipt Date: 20120221
  Transmission Date: 20120608
  Serious: Yes (Life-Threatening)
  Sender: FDA-Public Use
  Company Number: DE-ASTRAZENECA-2012SE11912

PATIENT
  Age: 74 Year
  Sex: Male

DRUGS (11)
  1. ATRACURIUM BESYLATE [Suspect]
     Indication: VASCULAR OPERATION
     Route: 065
  2. EPHEDRINE RENAUDIN [Suspect]
     Indication: VASCULAR OPERATION
     Route: 065
  3. PROPOFOL [Suspect]
     Indication: INDUCTION OF ANAESTHESIA
     Route: 042
     Dates: start: 20110504, end: 20110504
  4. CEFAZOLINE PANPHARMA [Suspect]
     Indication: VASCULAR OPERATION
     Route: 065
  5. KETAMINE HYDROCHLORIDE [Suspect]
     Indication: VASCULAR OPERATION
     Route: 065
  6. VOLUVEN [Suspect]
     Indication: FLUID REPLACEMENT
     Route: 041
     Dates: start: 20110504, end: 20110504
  7. ULTIVA [Suspect]
     Indication: VASCULAR OPERATION
     Route: 065
  8. GELOFUSINE [Suspect]
     Indication: VASCULAR OPERATION
     Route: 042
  9. SUPRANE [Suspect]
     Indication: VASCULAR OPERATION
     Route: 065
  10. PHENYLEPHRINE HCL [Suspect]
     Indication: VASCULAR OPERATION
     Route: 065
  11. CALCIUM CHLORIDE [Suspect]
     Indication: VASCULAR OPERATION
     Route: 065

REACTIONS (2)
  - ANAPHYLACTIC SHOCK [None]
  - GENERALISED ERYTHEMA [None]
